FAERS Safety Report 10016729 (Version 1)
Quarter: 2014Q1

REPORT INFORMATION
  Report Type: Report from Study
  Country: BR (occurrence: BR)
  Receive Date: 20140318
  Receipt Date: 20140318
  Transmission Date: 20141002
  Serious: Yes (Other)
  Sender: FDA-Public Use
  Company Number: PHHY2014BR030443

PATIENT
  Sex: Female

DRUGS (2)
  1. EXELON PATCH [Suspect]
     Dosage: 9.5 MG, DAILY (10CM2/18 MG)
     Route: 062
  2. EXELON [Suspect]
     Dosage: UNK UKN, UNK

REACTIONS (3)
  - Hydrocephalus [Unknown]
  - Dementia Alzheimer^s type [Unknown]
  - Amnesia [Unknown]
